FAERS Safety Report 22270066 (Version 1)
Quarter: 2023Q2

REPORT INFORMATION
  Report Type: Spontaneous
  Country: US (occurrence: US)
  Receive Date: 20230501
  Receipt Date: 20230501
  Transmission Date: 20230722
  Serious: Yes (Other)
  Sender: FDA-Public Use
  Company Number: US-NOVOPROD-1054938

PATIENT
  Sex: Male

DRUGS (1)
  1. LEVEMIR [Suspect]
     Active Substance: INSULIN DETEMIR
     Indication: Product used for unknown indication
     Dosage: 16 UNITS DAILY
     Route: 058
     Dates: start: 202302

REACTIONS (3)
  - Diabetic coma [Recovered/Resolved]
  - Incorrect dose administered by device [Unknown]
  - Device malfunction [Unknown]
